FAERS Safety Report 7335919-5 (Version None)
Quarter: 2011Q1

REPORT INFORMATION
  Report Type: 
  Country: None (occurrence: None)
  Receive Date: 20110307
  Receipt Date: 20110225
  Transmission Date: 20110831
  Serious: Yes (Hospitalization, Other)
  Sender: FDA-Public Use
  Company Number: US-ASTRAZENECA-2010SE04900

PATIENT
  Sex: Male

DRUGS (2)
  1. PRILOSEC OTC [Suspect]
     Route: 048
  2. NEXIUM [Suspect]
     Route: 048

REACTIONS (12)
  - GASTRIC HAEMORRHAGE [None]
  - DRUG DOSE OMISSION [None]
  - MALAISE [None]
  - DRUG INEFFECTIVE [None]
  - COLON CANCER RECURRENT [None]
  - HEART RATE INCREASED [None]
  - HAEMATEMESIS [None]
  - GASTROOESOPHAGEAL REFLUX DISEASE [None]
  - VOMITING [None]
  - MYOCARDIAL INFARCTION [None]
  - CHEST PAIN [None]
  - ABDOMINAL DISCOMFORT [None]
